FAERS Safety Report 5025681-3 (Version None)
Quarter: 2006Q2

REPORT INFORMATION
  Report Type: 
  Country: None (occurrence: None)
  Receive Date: 20060614
  Receipt Date: 20060605
  Transmission Date: 20061013
  Serious: Yes (Death, Hospitalization, Other)
  Sender: FDA-Public Use
  Company Number: JP-JNJFOC-20060503190

PATIENT
  Sex: Male

DRUGS (5)
  1. OXYBUTYNIN HYDROCHLORIDE [Suspect]
     Indication: POLLAKIURIA
     Route: 048
  2. GASTER [Concomitant]
     Indication: DUODENAL ULCER
     Route: 048
  3. HUSTAZOL [Concomitant]
     Indication: NASOPHARYNGITIS
     Route: 048
  4. CALONAL [Concomitant]
     Indication: NASOPHARYNGITIS
     Route: 048
  5. FERROMIA [Concomitant]
     Indication: IRON DEFICIENCY ANAEMIA
     Route: 048

REACTIONS (1)
  - HAEMOLYTIC ANAEMIA [None]
